FAERS Safety Report 25309839 (Version 2)
Quarter: 2025Q2

REPORT INFORMATION
  Report Type: Spontaneous
  Country: ES (occurrence: ES)
  Receive Date: 20250514
  Receipt Date: 20250529
  Transmission Date: 20250716
  Serious: Yes (Life-Threatening, Hospitalization)
  Sender: UCB
  Company Number: ES-Eisai-EC-2025-188770

PATIENT
  Age: 24 Year
  Sex: Female

DRUGS (4)
  1. LACOSAMIDE [Suspect]
     Active Substance: LACOSAMIDE
     Indication: Epilepsy
  2. LACOSAMIDE [Suspect]
     Active Substance: LACOSAMIDE
  3. FYCOMPA [Suspect]
     Active Substance: PERAMPANEL
     Indication: Epilepsy
     Route: 048
  4. FYCOMPA [Suspect]
     Active Substance: PERAMPANEL

REACTIONS (3)
  - Neurogenic pulmonary oedema [Recovered/Resolved]
  - Acute respiratory failure [Unknown]
  - Altered state of consciousness [Unknown]
